FAERS Safety Report 7399481-3 (Version None)
Quarter: 2011Q1

REPORT INFORMATION
  Report Type: 
  Country: None (occurrence: None)
  Receive Date: 20110329
  Receipt Date: 20110318
  Transmission Date: 20110831
  Serious: Yes (Hospitalization)
  Sender: FDA-Public Use
  Company Number: UTC-005813

PATIENT
  Age: 74 Year
  Sex: Female
  Weight: 68.18 kg

DRUGS (3)
  1. REMODULIN [Suspect]
     Indication: PULMONARY ARTERIAL HYPERTENSION
     Dosage: 0.008 UG/KG, SUBCUTANEOUS
     Route: 058
     Dates: start: 20110113
  2. ADCIRCA 9TADALAFIL) [Concomitant]
  3. TRACLEER [Concomitant]

REACTIONS (6)
  - FALL [None]
  - INJECTION SITE ABSCESS [None]
  - DEPRESSED MOOD [None]
  - CULTURE WOUND POSITIVE [None]
  - STAPHYLOCOCCAL INFECTION [None]
  - BLOOD GLUCOSE DECREASED [None]
